FAERS Safety Report 8085487-8 (Version None)
Quarter: 2012Q1

REPORT INFORMATION
  Report Type: 
  Country: None (occurrence: None)
  Receive Date: 20120128
  Receipt Date: 20110504
  Transmission Date: 20120608
  Serious: No
  Sender: FDA-Public Use
  Company Number: US-ABBOTT-11P-163-0710812-00

PATIENT
  Sex: Female
  Weight: 63.56 kg

DRUGS (4)
  1. MULTI-VITAMIN [Concomitant]
     Indication: VITAMIN SUPPLEMENTATION
     Route: 048
  2. HUMIRA [Suspect]
     Indication: PSORIASIS
     Route: 058
     Dates: start: 20100701, end: 20110201
  3. PROZAC [Concomitant]
     Indication: DEPRESSION
     Route: 048
  4. PROZAC [Concomitant]
     Indication: ANXIETY

REACTIONS (7)
  - PYREXIA [None]
  - PHARYNGITIS STREPTOCOCCAL [None]
  - EAR INFECTION [None]
  - BLOOD PRESSURE INCREASED [None]
  - SINUSITIS [None]
  - OROPHARYNGEAL PAIN [None]
  - PSORIASIS [None]
